FAERS Safety Report 4378680-9 (Version None)
Quarter: 2004Q2

REPORT INFORMATION
  Report Type: 
  Country: None (occurrence: None)
  Receive Date: 20040610
  Receipt Date: 20040528
  Transmission Date: 20050107
  Serious: Yes (Other)
  Sender: FDA-Public Use
  Company Number: HQWYE153901JUN04

PATIENT
  Age: 64 Year
  Sex: Female

DRUGS (4)
  1. EFFEXOR [Suspect]
     Dosage: ORAL
     Route: 048
     Dates: start: 20040401, end: 20040508
  2. LAMICTAL [Suspect]
     Dosage: ^DOSE PROGRESSIVELY INCREASED TO 50 MG X2 DAILY ORAL
     Route: 048
     Dates: start: 20040401, end: 20040518
  3. LUDIOMIL [Suspect]
     Dosage: ORAL
     Route: 048
     Dates: start: 20040513, end: 20040518
  4. TRAZODONE HCL [Suspect]
     Dosage: ORAL
     Route: 048
     Dates: start: 20040514, end: 20040518

REACTIONS (1)
  - ANGIONEUROTIC OEDEMA [None]
